FAERS Safety Report 8596333-8 (Version None)
Quarter: 2012Q3

REPORT INFORMATION
  Report Type: 
  Country: None (occurrence: None)
  Receive Date: 20120815
  Receipt Date: 20120813
  Transmission Date: 20120928
  Serious: Yes (Death, Other)
  Sender: FDA-Public Use
  Company Number: FI-ELI_LILLY_AND_COMPANY-FI201208003771

PATIENT
  Sex: Female

DRUGS (14)
  1. DUREKAL [Concomitant]
     Indication: HYPERKALAEMIA
  2. FORTEO [Suspect]
     Indication: OSTEOPOROSIS
     Dosage: 20 UG, QD
     Route: 058
     Dates: start: 20100524
  3. CALCIUM CARBONATE [Concomitant]
     Indication: MEDICAL DIET
  4. EPOETIN NOS [Concomitant]
  5. CORTISONE ACETATE [Concomitant]
     Dosage: 4 MG, QOD
  6. RAMIPRIL [Concomitant]
     Indication: RENAL DISORDER
  7. ROXIBION [Concomitant]
  8. EMCONCOR                                /BEL/ [Concomitant]
     Indication: HYPERTENSION
  9. WARFARIN SODIUM [Concomitant]
  10. MOVICOL                            /01625101/ [Concomitant]
     Indication: CONSTIPATION
  11. BUPRENORPHINE [Concomitant]
     Indication: PAIN
  12. DOXIMED                            /00055705/ [Concomitant]
  13. ZOLT [Concomitant]
  14. POLYGAM S/D [Concomitant]

REACTIONS (3)
  - GENERAL PHYSICAL HEALTH DETERIORATION [None]
  - VARICOSE ULCERATION [None]
  - DEATH [None]
